FAERS Safety Report 10012020 (Version 1)
Quarter: 2014Q1

REPORT INFORMATION
  Report Type: Spontaneous
  Country: US (occurrence: None)
  Receive Date: 20140313
  Receipt Date: 20140313
  Transmission Date: 20141002
  Serious: No
  Sender: FDA-Public Use
  Company Number: None

PATIENT
  Age: 81 Year
  Sex: Male

DRUGS (1)
  1. AFINITOR 10MG NOVARTIS [Suspect]
     Route: 048
     Dates: start: 20131217, end: 20140310

REACTIONS (2)
  - Drug ineffective [None]
  - Metastases to bone [None]
